FAERS Safety Report 4520667-7 (Version None)
Quarter: 2004Q4

REPORT INFORMATION
  Report Type: 
  Country: None (occurrence: None)
  Receive Date: 20041207
  Receipt Date: 20041116
  Transmission Date: 20050328
  Serious: Yes (Life-Threatening, Hospitalization, Disabling, Other)
  Sender: FDA-Public Use
  Company Number: US-MERCK-0411USA02757

PATIENT
  Age: 51 Year
  Sex: Female
  Weight: 57 kg

DRUGS (3)
  1. ZOCOR [Suspect]
     Route: 048
  2. ZITHROMAX [Concomitant]
     Route: 065
  3. [THERAPY UNSPECIFIED] [Concomitant]
     Route: 065

REACTIONS (5)
  - ACIDOSIS [None]
  - BLOOD ALCOHOL INCREASED [None]
  - COMA [None]
  - HYPOCALCAEMIA [None]
  - RENAL FAILURE [None]
